FAERS Safety Report 5861062-8 (Version None)
Quarter: 2008Q3

REPORT INFORMATION
  Report Type: 
  Country: None (occurrence: None)
  Receive Date: 20080827
  Receipt Date: 20080812
  Transmission Date: 20090109
  Serious: Yes (Other)
  Sender: FDA-Public Use
  Company Number: DE-GENENTECH-260819

PATIENT
  Sex: Female

DRUGS (4)
  1. HERCEPTIN [Suspect]
     Indication: BREAST CANCER METASTATIC
     Dosage: 560 MG, UNK
     Route: 042
     Dates: start: 20080220
  2. TAXOL [Suspect]
     Indication: BREAST CANCER METASTATIC
     Dosage: 306 MG, UNK
     Route: 042
     Dates: start: 20080219
  3. BEVACIZUMAB [Suspect]
     Indication: DRUG USE FOR UNKNOWN INDICATION
  4. BONDRONAT [Concomitant]
     Indication: DRUG USE FOR UNKNOWN INDICATION

REACTIONS (1)
  - CYTOKINE RELEASE SYNDROME [None]
